FAERS Safety Report 4501640-1 (Version None)
Quarter: 2004Q4

REPORT INFORMATION
  Report Type: 
  Country: None (occurrence: None)
  Receive Date: 20041115
  Receipt Date: 20041115
  Transmission Date: 20050328
  Serious: Yes (Life-Threatening)
  Sender: FDA-Public Use
  Company Number: None

PATIENT
  Age: 41 Year
  Sex: Male

DRUGS (5)
  1. HALOPERIDOL LACTATE [Suspect]
     Indication: AGITATION
     Dosage: IV, X 1 5 MG GIVEN
     Route: 042
     Dates: start: 20040914
  2. HALOPERIDOL LACTATE [Suspect]
     Indication: DELIRIUM TREMENS
     Dosage: IV, X 1 5 MG GIVEN
     Route: 042
     Dates: start: 20040914
  3. GABAPENTIN [Concomitant]
  4. PROPRANOLOL [Concomitant]
  5. SPIRONOLACTONE [Concomitant]

REACTIONS (7)
  - ALCOHOLIC LIVER DISEASE [None]
  - BRADYCARDIA [None]
  - CARDIAC ARREST [None]
  - COAGULOPATHY [None]
  - HEPATIC FAILURE [None]
  - HYPERTENSION [None]
  - MEDICATION ERROR [None]
